FAERS Safety Report 4560306-2 (Version None)
Quarter: 2005Q1

REPORT INFORMATION
  Report Type: 
  Country: None (occurrence: None)
  Receive Date: 20050125
  Receipt Date: 20050118
  Transmission Date: 20050727
  Serious: Yes (Other)
  Sender: FDA-Public Use
  Company Number: 200510550GDDC

PATIENT
  Age: 50 Year
  Sex: Male

DRUGS (3)
  1. KETEK [Suspect]
     Route: 048
  2. WARFARIN [Suspect]
  3. PREDNISONE [Concomitant]
     Dosage: DOSE: UNK

REACTIONS (5)
  - BLOOD PRESSURE INCREASED [None]
  - DRUG INTERACTION [None]
  - HAEMATOMA [None]
  - HEART RATE INCREASED [None]
  - PROTHROMBIN TIME PROLONGED [None]
